FAERS Safety Report 5885174-8 (Version None)
Quarter: 2008Q3

REPORT INFORMATION
  Report Type: 
  Country: None (occurrence: None)
  Receive Date: 20080912
  Receipt Date: 20080828
  Transmission Date: 20090109
  Serious: Yes (Death, Hospitalization)
  Sender: FDA-Public Use
  Company Number: 2008S1006716

PATIENT
  Age: 58 Year
  Sex: Female
  Weight: 45.8133 kg

DRUGS (7)
  1. FUROSEMIDE         TABLETS, USP (20 MG) [Suspect]
     Indication: FLUID RETENTION
     Dosage: 20 MG;DAILY;ORAL
     Route: 048
     Dates: start: 20080407, end: 20080417
  2. THYROID TAB [Concomitant]
  3. FOSAMAX [Concomitant]
  4. SIMVASTATIN [Concomitant]
  5. LISINOPRIL [Concomitant]
  6. AMBIEN [Concomitant]
  7. SPIRIVA [Concomitant]

REACTIONS (14)
  - AORTIC VALVE DISEASE [None]
  - ASTHENIA [None]
  - CARDIAC FAILURE CONGESTIVE [None]
  - CARDIOMYOPATHY [None]
  - CONDITION AGGRAVATED [None]
  - CONFUSIONAL STATE [None]
  - CORONARY ARTERY DISEASE [None]
  - DISORIENTATION [None]
  - DIZZINESS [None]
  - FATIGUE [None]
  - ISCHAEMIA [None]
  - LOSS OF CONSCIOUSNESS [None]
  - ROAD TRAFFIC ACCIDENT [None]
  - SOMNOLENCE [None]
